FAERS Safety Report 4698405-7 (Version None)
Quarter: 2005Q2

REPORT INFORMATION
  Report Type: 
  Country: None (occurrence: None)
  Receive Date: 20050621
  Receipt Date: 20050607
  Transmission Date: 20051028
  Serious: Yes (Hospitalization)
  Sender: FDA-Public Use
  Company Number: 033-1

PATIENT
  Age: 69 Year
  Sex: Male

DRUGS (2)
  1. TEVETEN HCT [Suspect]
     Indication: HYPERTENSION
     Dosage: 1 TABLET(S) PO
     Route: 048
     Dates: start: 20050330
  2. ASPIRIN [Concomitant]

REACTIONS (2)
  - ANGINA PECTORIS [None]
  - MYOCARDIAL INFARCTION [None]
